FAERS Safety Report 10513658 (Version 2)
Quarter: 2014Q4

REPORT INFORMATION
  Report Type: Spontaneous
  Country: NL (occurrence: NL)
  Receive Date: 20141013
  Receipt Date: 20141016
  Transmission Date: 20150528
  Serious: Yes (Hospitalization)
  Sender: FDA-Public Use
  Company Number: NL-JNJFOC-20141006129

PATIENT

DRUGS (1)
  1. INFLIXIMAB, RECOMBINANT [Suspect]
     Active Substance: INFLIXIMAB
     Indication: COLITIS ULCERATIVE
     Dosage: WEEKS 0, 2, AND 6
     Route: 042

REACTIONS (1)
  - Colectomy [Unknown]
